FAERS Safety Report 7804384 (Version 2)
Quarter: 2021Q4

REPORT INFORMATION
  Report Type: Spontaneous
  Country: US (occurrence: US)
  Receive Date: 20110208
  Receipt Date: 20211221
  Transmission Date: 20220303
  Serious: Yes (Death, Other)
  Sender: FDA-Public Use
  Company Number: CHPA2011US02048

PATIENT
  Age: 42 Year
  Sex: Female

DRUGS (1)
  1. ACETAMINOPHEN\DIPHENHYDRAMINE HYDROCHLORIDE [Suspect]
     Active Substance: ACETAMINOPHEN\DIPHENHYDRAMINE HYDROCHLORIDE
     Indication: Product used for unknown indication
     Dosage: UNK
     Route: 048

REACTIONS (19)
  - Completed suicide [Fatal]
  - Overdose [Fatal]
  - Vomiting [Unknown]
  - Mydriasis [Unknown]
  - Corneal reflex decreased [Unknown]
  - Electrocardiogram QT prolonged [Unknown]
  - Unresponsive to stimuli [Unknown]
  - Extensor plantar response [Unknown]
  - Endotracheal intubation [Unknown]
  - Hypothermia [Unknown]
  - Body temperature increased [Unknown]
  - Hypotension [Unknown]
  - Acidosis [Unknown]
  - Pleural effusion [Unknown]
  - Pulmonary congestion [Unknown]
  - Hepatic necrosis [Unknown]
  - Hepatic function abnormal [Unknown]
  - Blood creatinine increased [Unknown]
  - Intentional product misuse [Fatal]
